FAERS Safety Report 15880172 (Version 1)
Quarter: 2019Q1

REPORT INFORMATION
  Report Type: Spontaneous
  Country: US (occurrence: US)
  Receive Date: 20190128
  Receipt Date: 20190128
  Transmission Date: 20190417
  Serious: No
  Sender: FDA-Public Use
  Company Number: None

PATIENT
  Age: 47 Year
  Sex: Female

DRUGS (1)
  1. HIZENTRA [Suspect]
     Active Substance: HUMAN IMMUNOGLOBULIN G
     Indication: IMMUNODEFICIENCY
     Dosage: ?          OTHER FREQUENCY:EVERY WEEK;?
     Route: 058

REACTIONS (9)
  - Wrong technique in device usage process [None]
  - Injection site pain [None]
  - Injection site swelling [None]
  - Skin disorder [None]
  - Pyrexia [None]
  - Chills [None]
  - Injection site nodule [None]
  - Confusional state [None]
  - Dizziness [None]

NARRATIVE: CASE EVENT DATE: 20190126
